APPROVED DRUG PRODUCT: PERSANTINE
Active Ingredient: DIPYRIDAMOLE
Strength: 25MG **Federal Register determination that product was not discontinued or withdrawn for safety or effectiveness reasons**
Dosage Form/Route: TABLET;ORAL
Application: N012836 | Product #003
Applicant: BOEHRINGER INGELHEIM PHARMACEUTICALS INC
Approved: Dec 22, 1986 | RLD: Yes | RS: No | Type: DISCN